FAERS Safety Report 4293911-1 (Version None)
Quarter: 2004Q1

REPORT INFORMATION
  Report Type: 
  Country: None (occurrence: None)
  Receive Date: 20040210
  Receipt Date: 20040126
  Transmission Date: 20041129
  Serious: Yes (Disabling)
  Sender: FDA-Public Use
  Company Number: B0321899A

PATIENT
  Age: 24 Year
  Sex: Male
  Weight: 102.7851 kg

DRUGS (3)
  1. NICODERM CQ [Suspect]
     Indication: EX-SMOKER
     Dosage: TRANSDERMAL
     Route: 062
     Dates: start: 20011221, end: 20011230
  2. RISPERIDONE [Concomitant]
  3. FLUPENTHIXOL [Concomitant]

REACTIONS (1)
  - PSYCHOTIC DISORDER [None]
